FAERS Safety Report 23219833 (Version 1)
Quarter: 2023Q4

REPORT INFORMATION
  Report Type: Spontaneous
  Country: US (occurrence: US)
  Receive Date: 20231122
  Receipt Date: 20231122
  Transmission Date: 20240109
  Serious: No
  Sender: FDA-Public Use
  Company Number: US-AVADEL CNS PHARMACEUTICALS, LLC-2023AVA00088

PATIENT
  Age: 40 Year
  Sex: Female

DRUGS (11)
  1. LUMRYZ [Suspect]
     Active Substance: SODIUM OXYBATE
     Indication: Narcolepsy
     Dosage: 4.5 G, 1X/DAY
     Route: 048
     Dates: start: 20230820, end: 20230822
  2. LUMRYZ [Suspect]
     Active Substance: SODIUM OXYBATE
     Dosage: 4.5 G, 1X/DAY
     Route: 048
     Dates: start: 202309
  3. LUMRYZ [Suspect]
     Active Substance: SODIUM OXYBATE
     Indication: Narcolepsy
     Dosage: 6 G, 1X/DAY
     Route: 048
     Dates: start: 20230823, end: 20230829
  4. LUMRYZ [Suspect]
     Active Substance: SODIUM OXYBATE
     Indication: Narcolepsy
     Dosage: 7.5 G, 1X/DAY
     Route: 048
     Dates: start: 20230830, end: 202309
  5. LEVOTHYROXINE [Concomitant]
     Active Substance: LEVOTHYROXINE
     Dosage: 150 ?G, EVERY 48 HOURS, ALTERNATING WITH 175 ?G
  6. LEVOTHYROXINE [Concomitant]
     Active Substance: LEVOTHYROXINE
     Dosage: 175 ?G, EVERY 48 HOURS, ALTERNATING WITH 150 ?G
  7. BUPROPION [Concomitant]
     Active Substance: BUPROPION
     Dosage: 100 MG, 2X/DAY
  8. VRAYLAR [Concomitant]
     Active Substance: CARIPRAZINE
     Dosage: 1.5 MG, 1X/DAY
  9. PANTOPRAZOLE [Concomitant]
     Active Substance: PANTOPRAZOLE
     Dosage: 40 MG, 1X/DAY
  10. METOPROLOL [Concomitant]
     Active Substance: METOPROLOL
     Dosage: 25 MG, 1X/DAY
  11. SUNOSI [Concomitant]
     Active Substance: SOLRIAMFETOL
     Dosage: 150 MG, 1X/DAY

REACTIONS (10)
  - Anger [Recovered/Resolved]
  - Crying [Unknown]
  - Terminal insomnia [Not Recovered/Not Resolved]
  - Irritability [Unknown]
  - Emotional disorder [Recovered/Resolved]
  - Somnolence [Unknown]
  - Aggression [Unknown]
  - Agitation [Unknown]
  - Vomiting [Recovered/Resolved]
  - Nausea [Recovered/Resolved]

NARRATIVE: CASE EVENT DATE: 20230801
